FAERS Safety Report 4335890-4 (Version None)
Quarter: 2004Q2

REPORT INFORMATION
  Report Type: 
  Country: None (occurrence: None)
  Receive Date: 20040405
  Receipt Date: 20040330
  Transmission Date: 20050107
  Serious: Yes (Hospitalization)
  Sender: FDA-Public Use
  Company Number: 04P-122-0254286-00

PATIENT

DRUGS (4)
  1. SEVOFLURANE [Suspect]
     Indication: ANAESTHESIA
     Dosage: 3 %, INHALATION
     Route: 055
  2. DICLOFENAC SODIUM [Concomitant]
  3. FENTANYL [Concomitant]
  4. PROPOFOL [Concomitant]

REACTIONS (2)
  - LOSS OF CONSCIOUSNESS [None]
  - MYOCLONUS [None]
